FAERS Safety Report 17444409 (Version 2)
Quarter: 2020Q2

REPORT INFORMATION
  Report Type: Spontaneous
  Country: US (occurrence: US)
  Receive Date: 20200221
  Receipt Date: 20200415
  Transmission Date: 20200713
  Serious: Yes (Hospitalization)
  Sender: FDA-Public Use
  Company Number: US-ASTRAZENECA-2020SE25051

PATIENT
  Sex: Male

DRUGS (6)
  1. SYNAGIS [Suspect]
     Active Substance: PALIVIZUMAB
     Indication: ATRIAL SEPTAL DEFECT
     Dosage: 15 MG/KG (STRENGTH: 50MG/0.5ML) MONTHLY
     Route: 030
     Dates: start: 201911
  2. SYNAGIS [Suspect]
     Active Substance: PALIVIZUMAB
     Indication: PREMATURE BABY
     Dosage: 15 MG/KG (STRENGTH: 50MG/0.5ML) MONTHLY
     Route: 030
     Dates: start: 201911
  3. SYNAGIS [Suspect]
     Active Substance: PALIVIZUMAB
     Indication: BRONCHOPULMONARY DYSPLASIA
     Dosage: 15 MG/KG (STRENGTH: 50MG/0.5ML) MONTHLY
     Route: 030
     Dates: start: 201911
  4. SYNAGIS [Suspect]
     Active Substance: PALIVIZUMAB
     Indication: PREMATURE BABY
     Dosage: 15 MG/KG (STRENGTH: 50MG/0.5ML) MONTHLY
     Route: 030
     Dates: start: 201911
  5. SYNAGIS [Suspect]
     Active Substance: PALIVIZUMAB
     Indication: PATENT DUCTUS ARTERIOSUS
     Dosage: 15 MG/KG (STRENGTH: 50MG/0.5ML) MONTHLY
     Route: 030
     Dates: start: 201911
  6. SYNAGIS [Suspect]
     Active Substance: PALIVIZUMAB
     Indication: NEONATAL RESPIRATORY DISTRESS SYNDROME
     Dosage: 15 MG/KG (STRENGTH: 50MG/0.5ML) MONTHLY
     Route: 030
     Dates: start: 201911

REACTIONS (2)
  - Respiratory distress [Unknown]
  - Respiratory disorder [Unknown]
